FAERS Safety Report 6960623-2 (Version None)
Quarter: 2010Q3

REPORT INFORMATION
  Report Type: 
  Country: None (occurrence: None)
  Receive Date: 20100827
  Receipt Date: 20100813
  Transmission Date: 20110219
  Serious: Yes (Hospitalization)
  Sender: FDA-Public Use
  Company Number: 1000015781

PATIENT
  Age: 30 Year
  Sex: Male

DRUGS (4)
  1. ACAMPROSATE CALCIUM [Suspect]
     Indication: ALCOHOL POISONING
     Dosage: 333 MG (333 MG,1 IN 1 D),ORAL
     Route: 048
     Dates: start: 20100715, end: 20100719
  2. SERESTA (TABLETS) [Suspect]
     Indication: ALCOHOL POISONING
     Dosage: ORAL
     Route: 048
     Dates: start: 20100715, end: 20100719
  3. VITAMIN B1 AND B6 [Concomitant]
  4. NICOBION [Concomitant]

REACTIONS (14)
  - ALANINE AMINOTRANSFERASE INCREASED [None]
  - ASPARTATE AMINOTRANSFERASE INCREASED [None]
  - BLOOD ALKALINE PHOSPHATASE INCREASED [None]
  - BLOOD PRESSURE SYSTOLIC INCREASED [None]
  - CARDIAC MURMUR [None]
  - CHEST PAIN [None]
  - CYTOLYTIC HEPATITIS [None]
  - DEPRESSION [None]
  - GAMMA-GLUTAMYLTRANSFERASE INCREASED [None]
  - HEPATOCELLULAR INJURY [None]
  - NAUSEA [None]
  - PAIN [None]
  - RESPIRATORY RATE INCREASED [None]
  - TACHYCARDIA [None]
